FAERS Safety Report 13862976 (Version 2)
Quarter: 2017Q3

REPORT INFORMATION
  Report Type: Spontaneous
  Country: JP (occurrence: JP)
  Receive Date: 20170814
  Receipt Date: 20170919
  Transmission Date: 20171127
  Serious: Yes (Other)
  Sender: FDA-Public Use
  Company Number: JP-SUN PHARMACEUTICAL INDUSTRIES LTD-2017RR-139953

PATIENT
  Age: 58 Year
  Sex: Female

DRUGS (7)
  1. OXYCODONE [Suspect]
     Active Substance: OXYCODONE
     Indication: PAIN
     Dosage: 10 MG, DAILY, DISINTEGRATING TABLET
     Route: 048
  2. EVEROLIMUS [Concomitant]
     Active Substance: EVEROLIMUS
     Indication: BREAST CANCER
     Dosage: 10 MG/BODY/DAY
     Route: 065
     Dates: start: 201501
  3. ZOLEDRONIC ACID [Suspect]
     Active Substance: ZOLEDRONIC ACID
     Indication: PAIN
     Dosage: 4 MG/100 ML, EVERY 3 WEEKS FOR 6 TIMES
     Route: 042
     Dates: start: 201501
  4. EXEMESTANE. [Suspect]
     Active Substance: EXEMESTANE
     Indication: BREAST CANCER
     Dosage: 25 MG/BODY/DAY
     Route: 065
     Dates: start: 201501
  5. EVEROLIMUS [Concomitant]
     Active Substance: EVEROLIMUS
     Indication: METASTASES TO BONE
  6. EXEMESTANE. [Suspect]
     Active Substance: EXEMESTANE
     Indication: METASTASES TO BONE
  7. FENTANYL. [Suspect]
     Active Substance: FENTANYL
     Indication: PAIN
     Dosage: DISINTEGRATING TABLET
     Route: 048
     Dates: start: 201501

REACTIONS (3)
  - Rash [Recovering/Resolving]
  - Disease progression [Recovered/Resolved]
  - Pruritus [Recovering/Resolving]
